FAERS Safety Report 14311779 (Version 2)
Quarter: 2018Q1

REPORT INFORMATION
  Report Type: Spontaneous
  Country: IT (occurrence: IT)
  Receive Date: 20171221
  Receipt Date: 20180304
  Transmission Date: 20180509
  Serious: Yes (Hospitalization)
  Sender: FDA-Public Use
  Company Number: IT-CONCORDIA PHARMACEUTICALS INC.-E2B_00008915

PATIENT
  Age: 85 Year
  Sex: Female

DRUGS (10)
  1. BRETARIS GENUAIR 322 MICROGRAMS INHALATION POWDER [Concomitant]
     Route: 055
  2. KANRENOL 100 COMPRESSE [Suspect]
     Active Substance: CANRENOATE POTASSIUM
     Indication: HYPERTENSION
     Route: 048
     Dates: start: 20160101, end: 20171122
  3. SYMBICORT, 160 MICROGRAMMI/4,5 MICROGRAMMI/ INALAZIONE, POLVERE PER IN [Concomitant]
     Route: 055
  4. APLACTIN 20 MG COMPRESSE [Concomitant]
     Route: 048
  5. URBASON 4 MG COMPRESSE [Concomitant]
     Route: 048
  6. LOPRESOR 100 MG COMPRESSE RIVESTITE CON FILM [Concomitant]
     Active Substance: METOPROLOL TARTRATE
     Route: 048
  7. LANOXIN [Suspect]
     Active Substance: DIGOXIN
     Indication: ATRIAL FIBRILLATION
     Route: 048
     Dates: start: 20141020, end: 20171122
  8. XARELTO 15 MG FILM-COATED TABLETS [Concomitant]
     Route: 048
  9. LASIX [Concomitant]
     Active Substance: FUROSEMIDE
     Route: 048
  10. ZYLORIC 100 MG COMPRESSE [Concomitant]
     Route: 048

REACTIONS (11)
  - International normalised ratio increased [None]
  - Blood urea increased [None]
  - Nausea [Recovered/Resolved]
  - C-reactive protein increased [None]
  - Cardioactive drug level increased [None]
  - Blood creatinine increased [None]
  - Asthenia [Recovered/Resolved]
  - Blood potassium increased [Recovered/Resolved]
  - Vomiting [Recovered/Resolved]
  - White blood cell count increased [None]
  - Blood sodium decreased [None]

NARRATIVE: CASE EVENT DATE: 20171121
